FAERS Safety Report 10903442 (Version 1)
Quarter: 2015Q1

REPORT INFORMATION
  Report Type: Spontaneous
  Country: US (occurrence: None)
  Receive Date: 20150304
  Receipt Date: 20150304
  Transmission Date: 20150721
  Serious: Yes (Hospitalization)
  Sender: FDA-Public Use
  Company Number: None

PATIENT
  Age: 70 Year
  Sex: Male
  Weight: 63 kg

DRUGS (1)
  1. OBINUTUZUMAB [Suspect]
     Active Substance: OBINUTUZUMAB
     Indication: CHRONIC LYMPHOCYTIC LEUKAEMIA
     Route: 042
     Dates: start: 20150203, end: 20150203

REACTIONS (6)
  - Pyrexia [None]
  - Diarrhoea [None]
  - Confusional state [None]
  - Aggression [None]
  - Chills [None]
  - Oxygen saturation decreased [None]

NARRATIVE: CASE EVENT DATE: 20150203
